FAERS Safety Report 7412332-3 (Version None)
Quarter: 2011Q2

REPORT INFORMATION
  Report Type: 
  Country: None (occurrence: None)
  Receive Date: 20110413
  Receipt Date: 20110405
  Transmission Date: 20111010
  Serious: Yes (Other)
  Sender: FDA-Public Use
  Company Number: FR-ALLERGAN-1104969US

PATIENT
  Age: 14 Year
  Sex: Male

DRUGS (1)
  1. TROSPIUM CHLORIDE [Suspect]
     Indication: PRODUCT USED FOR UNKNOWN INDICATION
     Dosage: 40 MG, QD
     Route: 048
     Dates: start: 20110301, end: 20110401

REACTIONS (3)
  - ACCOMMODATION DISORDER [None]
  - VISION BLURRED [None]
  - VISUAL IMPAIRMENT [None]
